FAERS Safety Report 22082224 (Version 1)
Quarter: 2023Q1

REPORT INFORMATION
  Report Type: Spontaneous
  Country: CN (occurrence: CN)
  Receive Date: 20230310
  Receipt Date: 20230310
  Transmission Date: 20230418
  Serious: Yes (Other)
  Sender: FDA-Public Use
  Company Number: CN-009507513-2303CHN002809

PATIENT
  Age: 46 Year
  Sex: Female
  Weight: 44 kg

DRUGS (4)
  1. CILASTATIN SODIUM\IMIPENEM [Suspect]
     Active Substance: CILASTATIN SODIUM\IMIPENEM
     Indication: Anti-infective therapy
     Dosage: 1 GRAM, TID
     Route: 041
     Dates: start: 20230208, end: 20230215
  2. VORICONAZOLE [Suspect]
     Active Substance: VORICONAZOLE
     Indication: Antifungal treatment
     Dosage: 0.2G, Q12H
     Route: 041
     Dates: start: 20230128, end: 20230216
  3. VORICONAZOLE [Suspect]
     Active Substance: VORICONAZOLE
     Dosage: REDUCED TO 0.2G QD
     Route: 041
     Dates: start: 20230216, end: 20230217
  4. MEROPENEM [Concomitant]
     Active Substance: MEROPENEM
     Indication: Anti-infective therapy
     Dosage: 0.5G, TID
     Route: 041
     Dates: start: 20230216, end: 20230218

REACTIONS (3)
  - Confusional state [Recovering/Resolving]
  - Tic [Recovering/Resolving]
  - Hallucination [Recovering/Resolving]

NARRATIVE: CASE EVENT DATE: 20230216
